FAERS Safety Report 8983047 (Version 3)
Quarter: 2013Q2

REPORT INFORMATION
  Report Type: Report from Study
  Country: DE (occurrence: DE)
  Receive Date: 20121224
  Receipt Date: 20130607
  Transmission Date: 20140414
  Serious: Yes (Hospitalization, Other)
  Sender: FDA-Public Use
  Company Number: DE-OTSUKA-EU-2012-10344

PATIENT
  Sex: Male
  Weight: 101 kg

DRUGS (27)
  1. SAMSCA [Suspect]
     Indication: INAPPROPRIATE ANTIDIURETIC HORMONE SECRETION
     Dosage: 15 MG MILLIGRAM(S), DAILY DOSE
     Route: 048
     Dates: start: 20110502, end: 20110516
  2. SAMSCA [Suspect]
     Dosage: 15 MG MILLIGRAM(S), DAILY DOSE
     Route: 048
     Dates: start: 20120530, end: 20111010
  3. SAMSCA [Suspect]
     Dosage: 30 MG MILLIGRAM(S), DAILY DOSE
     Route: 048
     Dates: start: 20111011, end: 201111
  4. CONCOR [Concomitant]
     Indication: HYPERTENSION
     Dosage: 7.5 MG MILLIGRAM(S), DAILY DOSE
     Route: 048
     Dates: start: 201104, end: 201105
  5. CONCOR [Concomitant]
     Dosage: 5 MG MILLIGRAM(S), DAILY DOSE
     Route: 048
     Dates: start: 201105, end: 201110
  6. TRAMAL [Concomitant]
     Indication: PAIN
     Dosage: 20 DF DOSAGE FORM, PRN
     Dates: start: 201104
  7. METAMIZOLE [Concomitant]
     Indication: PAIN
     Dosage: 25 DF DOSAGE FORM, PRN
     Route: 048
     Dates: start: 20101230
  8. TOPOTECAN [Concomitant]
     Indication: SMALL CELL LUNG CANCER
     Dosage: 1 MG/M2, UNKNOWN
     Route: 042
     Dates: start: 201106, end: 201108
  9. CISPLATIN [Concomitant]
     Indication: SMALL CELL LUNG CANCER
     Dosage: 40 MG/M2, UNKNOWN
     Route: 042
     Dates: start: 201102, end: 201106
  10. ETOPOSID [Concomitant]
     Indication: SMALL CELL LUNG CANCER
     Dosage: 90 MG MILLIGRAM(S), UNKNOWN
     Route: 042
     Dates: start: 201102, end: 201106
  11. DEXAMETHASON [Concomitant]
     Indication: PROPHYLAXIS OF NAUSEA AND VOMITING
     Dosage: 16 MG MILLIGRAM(S), UNKNOWN
     Route: 042
     Dates: start: 201102, end: 201106
  12. DEXAMETHASON [Concomitant]
     Dosage: 8 MG MILLIGRAM(S), UNKNOWN
     Route: 042
     Dates: start: 201106, end: 201108
  13. GRANISETRON [Concomitant]
     Indication: PROPHYLAXIS OF NAUSEA AND VOMITING
     Dosage: 3 MG MILLIGRAM(S), UNKNOWN
     Route: 042
     Dates: start: 201102, end: 201106
  14. GRANISETRON [Concomitant]
     Dosage: 1 MG MILLIGRAM(S), UNKNOWN
     Route: 042
     Dates: start: 201106, end: 201108
  15. APREPITANT [Concomitant]
     Indication: PROPHYLAXIS OF NAUSEA AND VOMITING
     Dosage: UNK, UNKNOWN
     Route: 048
     Dates: start: 201101, end: 201106
  16. METOCLOPRAMID [Concomitant]
     Indication: NAUSEA
     Dosage: 15 DF DOSAGE FORM, PRN
     Route: 048
     Dates: start: 201102
  17. LENOGRASTIM [Concomitant]
     Indication: LEUKOPENIA
     Dosage: 34 IU, PRN
     Route: 058
     Dates: start: 2011, end: 201108
  18. TORASEMID [Concomitant]
     Indication: HYPERTENSION
     Dosage: 40 MG MILLIGRAM(S), DAILY DOSE
     Route: 048
     Dates: start: 201107, end: 201110
  19. TORASEMID [Concomitant]
     Dosage: 10 MG MILLIGRAM(S), DAILY DOSE
     Route: 048
     Dates: start: 201110
  20. PANTOPRAZOL [Concomitant]
     Indication: ABDOMINAL PAIN
     Dosage: 80 MG MILLIGRAM(S), DAILY DOSE
     Route: 048
     Dates: start: 201109
  21. DEXAMETHASON [Concomitant]
     Indication: METASTASES TO CENTRAL NERVOUS SYSTEM
     Dosage: 6 MG MILLIGRAM(S), DAILY DOSE
     Route: 048
     Dates: start: 201110
  22. RAMIPRIL [Concomitant]
     Indication: HYPERTENSION
     Dosage: 7.5 MG MILLIGRAM(S), DAILY DOSE
     Route: 048
     Dates: start: 201110
  23. NEBIVOLOL [Concomitant]
     Indication: HYPERTENSION
     Dosage: 2.5 MG MILLIGRAM(S), DAILY DOSE
     Route: 048
     Dates: start: 201110
  24. HYDROMORPHONE [Concomitant]
     Indication: PAIN
     Dosage: 20 MG MILLIGRAM(S), DAILY DOSE
     Route: 048
     Dates: start: 201110
  25. HYDROMORPHONE [Concomitant]
     Dosage: 1.3 MG MILLIGRAM(S), DAILY DOSE
     Route: 048
     Dates: start: 201110
  26. DICLOFENAC [Concomitant]
     Indication: PAIN
     Dosage: 150 MG MILLIGRAM(S), DAILY DOSE
     Route: 048
     Dates: start: 201110
  27. ENOXAPARIN [Concomitant]
     Indication: THROMBOSIS PROPHYLAXIS
     Dosage: 40 MG MILLIGRAM(S), PRN
     Route: 058
     Dates: start: 201012

REACTIONS (21)
  - Metastases to pancreas [Not Recovered/Not Resolved]
  - Metastases to central nervous system [Not Recovered/Not Resolved]
  - Pancreatitis [Recovered/Resolved]
  - Sepsis [Recovered/Resolved]
  - Sepsis [Not Recovered/Not Resolved]
  - Weight decreased [Recovered/Resolved]
  - Anaemia [Recovered/Resolved]
  - Pneumonitis [Recovered/Resolved]
  - Diabetes mellitus [Not Recovered/Not Resolved]
  - Restrictive pulmonary disease [Not Recovered/Not Resolved]
  - Psychotic disorder due to a general medical condition [Recovered/Resolved]
  - Weight decreased [Recovered/Resolved]
  - Abdominal pain [Not Recovered/Not Resolved]
  - Pancreatic enzymes decreased [Not Recovered/Not Resolved]
  - Enteritis [Recovered/Resolved]
  - Candida infection [Not Recovered/Not Resolved]
  - Sleep disorder [Not Recovered/Not Resolved]
  - Weight increased [Recovered/Resolved]
  - Constipation [Not Recovered/Not Resolved]
  - Flatulence [Not Recovered/Not Resolved]
  - Hyperkalaemia [Not Recovered/Not Resolved]
